FAERS Safety Report 7464969-3 (Version None)
Quarter: 2011Q2

REPORT INFORMATION
  Report Type: 
  Country: None (occurrence: None)
  Receive Date: 20110509
  Receipt Date: 20110427
  Transmission Date: 20111010
  Serious: No
  Sender: FDA-Public Use
  Company Number: AU-JNJFOC-20110500099

PATIENT
  Sex: Male

DRUGS (1)
  1. DURAGESIC-100 [Suspect]
     Indication: ROAD TRAFFIC ACCIDENT
     Route: 062

REACTIONS (5)
  - DRUG INEFFECTIVE [None]
  - WITHDRAWAL SYNDROME [None]
  - INSOMNIA [None]
  - PRURITUS [None]
  - WRONG TECHNIQUE IN DRUG USAGE PROCESS [None]
